FAERS Safety Report 8496310-1 (Version None)
Quarter: 2012Q2

REPORT INFORMATION
  Report Type: 
  Country: None (occurrence: None)
  Receive Date: 20120405
  Receipt Date: 20110228
  Transmission Date: 20120825
  Serious: Yes (Hospitalization, Other)
  Sender: FDA-Public Use
  Company Number: PHHY2011US16653

PATIENT
  Age: 42 Year
  Sex: Male

DRUGS (4)
  1. LOTREL [Suspect]
     Dosage: 10/40 MG
  2. ATENOLOL [Concomitant]
  3. PROTONIX [Concomitant]
  4. PRAVACHOL [Concomitant]

REACTIONS (6)
  - COUGH [None]
  - MALAISE [None]
  - HEART RATE INCREASED [None]
  - METABOLIC DISORDER [None]
  - BLOOD PRESSURE INCREASED [None]
  - DYSPNOEA [None]
